FAERS Safety Report 6159926-3 (Version None)
Quarter: 2009Q2

REPORT INFORMATION
  Report Type: 
  Country: None (occurrence: None)
  Receive Date: 20090416
  Receipt Date: 20090402
  Transmission Date: 20091009
  Serious: Yes (Hospitalization)
  Sender: FDA-Public Use
  Company Number: 232712K09USA

PATIENT
  Age: 56 Year
  Sex: Female

DRUGS (5)
  1. REBIF [Suspect]
     Indication: MULTIPLE SCLEROSIS
     Dosage: 44 MCG, 3 IN 1 WEEKS, SUBCUTANEOUS
     Route: 058
     Dates: start: 20071129
  2. QUINAPRIL HCL [Suspect]
     Indication: HYPERTENSION
     Dates: end: 20090301
  3. ATACAND [Suspect]
     Indication: HYPERTENSION
     Dates: end: 20090301
  4. VERAPAMIL [Suspect]
     Indication: HYPERTENSION
     Dates: end: 20090301
  5. METFORMIN HCL [Concomitant]

REACTIONS (12)
  - BLOOD GLUCOSE INCREASED [None]
  - CONDITION AGGRAVATED [None]
  - DIZZINESS [None]
  - FATIGUE [None]
  - HAEMATOCRIT DECREASED [None]
  - HAEMOGLOBIN DECREASED [None]
  - HEADACHE [None]
  - LOSS OF CONSCIOUSNESS [None]
  - MULTIPLE SCLEROSIS [None]
  - ORTHOSTATIC HYPOTENSION [None]
  - PAIN [None]
  - RED BLOOD CELL COUNT DECREASED [None]
